FAERS Safety Report 25266524 (Version 2)
Quarter: 2025Q2

REPORT INFORMATION
  Report Type: Spontaneous
  Country: JP (occurrence: JP)
  Receive Date: 20250505
  Receipt Date: 20250526
  Transmission Date: 20250716
  Serious: Yes (Life-Threatening, Hospitalization, Other)
  Sender: GENMAB
  Company Number: JP-GENMAB-2025-01204

PATIENT
  Age: 55 Year
  Sex: Male

DRUGS (3)
  1. EPKINLY [Suspect]
     Active Substance: EPCORITAMAB-BYSP
     Indication: Diffuse large B-cell lymphoma refractory
     Route: 065
     Dates: start: 20241113, end: 20241113
  2. EPKINLY [Suspect]
     Active Substance: EPCORITAMAB-BYSP
     Route: 065
     Dates: start: 2024, end: 2024
  3. EPKINLY [Suspect]
     Active Substance: EPCORITAMAB-BYSP
     Route: 065
     Dates: start: 20250119

REACTIONS (7)
  - Enterovesical fistula [Recovered/Resolved]
  - Septic shock [Recovered/Resolved]
  - Pseudomonal sepsis [Recovered/Resolved]
  - Enterocutaneous fistula [Recovered/Resolved]
  - Enterocutaneous fistula [Recovered/Resolved]
  - Enterocutaneous fistula [Recovered/Resolved]
  - Diffuse large B-cell lymphoma refractory [Unknown]

NARRATIVE: CASE EVENT DATE: 20241209
